FAERS Safety Report 25688693 (Version 1)
Quarter: 2025Q3

REPORT INFORMATION
  Report Type: Other
  Country: CN (occurrence: CN)
  Receive Date: 20250818
  Receipt Date: 20250818
  Transmission Date: 20251021
  Serious: Yes (Hospitalization)
  Sender: DEXCEL LTD.
  Company Number: CN-DEXPHARM-2025-4171

PATIENT
  Age: 60 Year
  Sex: Female

DRUGS (2)
  1. TOFACITINIB [Suspect]
     Active Substance: TOFACITINIB
     Indication: Arthralgia
  2. METHOTREXATE [Suspect]
     Active Substance: METHOTREXATE
     Indication: Arthralgia

REACTIONS (2)
  - Hepatitis B reactivation [Recovered/Resolved]
  - Withdrawal syndrome [Recovered/Resolved]
